FAERS Safety Report 7928672-5 (Version None)
Quarter: 2011Q4

REPORT INFORMATION
  Report Type: 
  Country: None (occurrence: None)
  Receive Date: 20111118
  Receipt Date: 20111114
  Transmission Date: 20120403
  Serious: Yes (Other)
  Sender: FDA-Public Use
  Company Number: GB-ABBOTT-11P-167-0874268-00

PATIENT
  Sex: Female

DRUGS (1)
  1. HUMIRA [Suspect]
     Indication: CROHN'S DISEASE
     Route: 058
     Dates: start: 20110701

REACTIONS (5)
  - ASTHENIA [None]
  - NAUSEA [None]
  - MALAISE [None]
  - MOBILITY DECREASED [None]
  - DIZZINESS [None]
